FAERS Safety Report 21647047 (Version 1)
Quarter: 2022Q4

REPORT INFORMATION
  Report Type: Spontaneous
  Country: DE (occurrence: DE)
  Receive Date: 20221127
  Receipt Date: 20221127
  Transmission Date: 20230113
  Serious: Yes (Hospitalization)
  Sender: FDA-Public Use
  Company Number: None

PATIENT
  Age: 58 Year
  Sex: Male
  Weight: 80 kg

DRUGS (8)
  1. SPIRONOLACTONE [Suspect]
     Active Substance: SPIRONOLACTONE
     Indication: Product used for unknown indication
     Dosage: 50 MG, 1-0-0-0
  2. TORSEMIDE [Suspect]
     Active Substance: TORSEMIDE
     Indication: Product used for unknown indication
     Dosage: 10 MG, 1-0-0-0
  3. OFLOXACIN [Suspect]
     Active Substance: OFLOXACIN
     Indication: Product used for unknown indication
     Dosage: 400 MG
  4. LANTUS [Concomitant]
     Active Substance: INSULIN GLARGINE
     Dosage: 0-0-16-0
  5. NOVORAPID [Concomitant]
     Active Substance: INSULIN ASPART
     Dosage: 100 UNITS/ML 3ML, ACCORDING TO SCHEME
  6. CARVEDILOL [Concomitant]
     Active Substance: CARVEDILOL
     Dosage: 6.25 MG, 1-0-0-0
  7. PIPAMPERONE [Concomitant]
     Active Substance: PIPAMPERONE
     Dosage: AS REQUIRED, SYRUP
  8. CITALOPRAM [Concomitant]
     Active Substance: CITALOPRAM HYDROBROMIDE
     Dosage: 10 MG, 1-0-0-0

REACTIONS (8)
  - Dysuria [Unknown]
  - Insomnia [Unknown]
  - Hyponatraemia [Unknown]
  - Vomiting [Unknown]
  - Restlessness [Unknown]
  - Nausea [Unknown]
  - Blood creatinine increased [Unknown]
  - Hyperkalaemia [Unknown]
